FAERS Safety Report 21871377 (Version 2)
Quarter: 2023Q2

REPORT INFORMATION
  Report Type: Spontaneous
  Country: US (occurrence: US)
  Receive Date: 20230117
  Receipt Date: 20230518
  Transmission Date: 20230722
  Serious: Yes (Other)
  Sender: FDA-Public Use
  Company Number: US-AMNEAL PHARMACEUTICALS-2023-AMRX-00051

PATIENT
  Age: 74 Year
  Sex: Female

DRUGS (2)
  1. RYTARY [Suspect]
     Active Substance: CARBIDOPA\LEVODOPA
     Indication: Parkinson^s disease
     Dosage: 4 CAPSULES, 2 /DAY
     Route: 065
     Dates: start: 2022
  2. LITHIUM [Concomitant]
     Active Substance: LITHIUM
     Indication: Product used for unknown indication
     Dosage: UNK
     Route: 065

REACTIONS (5)
  - Bipolar disorder [Not Recovered/Not Resolved]
  - Cataract operation [Recovered/Resolved]
  - Confusional state [Unknown]
  - Depression [Not Recovered/Not Resolved]
  - Dental care [Recovered/Resolved]

NARRATIVE: CASE EVENT DATE: 20220601
